APPROVED DRUG PRODUCT: INVEGA HAFYERA
Active Ingredient: PALIPERIDONE PALMITATE
Strength: 1.092GM/3.5ML (312MG/ML)
Dosage Form/Route: SUSPENSION, EXTENDED RELEASE;INTRAMUSCULAR
Application: N207946 | Product #005
Applicant: JANSSEN PHARMACEUTICALS INC
Approved: Aug 30, 2021 | RLD: Yes | RS: Yes | Type: RX

PATENTS:
Patent 11324751 | Expires: May 7, 2041
Patent 11304951 | Expires: May 7, 2041
Patent 12208100 | Expires: May 7, 2041
Patent 12208100 | Expires: May 7, 2041
Patent 11666697 | Expires: Nov 24, 2041